FAERS Safety Report 7303875-1 (Version None)
Quarter: 2011Q1

REPORT INFORMATION
  Report Type: 
  Country: None (occurrence: None)
  Receive Date: 20110221
  Receipt Date: 20110210
  Transmission Date: 20110831
  Serious: Yes (Other)
  Sender: FDA-Public Use
  Company Number: B0696585A

PATIENT
  Sex: Male

DRUGS (5)
  1. SODIUM CHONDROITIN SULPHATE [Concomitant]
     Route: 061
  2. OFLOXACIN [Concomitant]
     Route: 061
  3. STEROID PULSE THERAPY [Concomitant]
     Dates: start: 20110117
  4. PARIET [Concomitant]
     Dosage: 10MG PER DAY
     Route: 048
     Dates: start: 20110114, end: 20110120
  5. VALTREX [Suspect]
     Indication: HERPES ZOSTER OTICUS
     Dosage: 3000MG PER DAY
     Route: 048
     Dates: start: 20110114, end: 20110120

REACTIONS (4)
  - FEELING ABNORMAL [None]
  - LOSS OF CONSCIOUSNESS [None]
  - RENAL FAILURE ACUTE [None]
  - INTERSTITIAL LUNG DISEASE [None]
